FAERS Safety Report 12249335 (Version 2)
Quarter: 2016Q2

REPORT INFORMATION
  Report Type: Spontaneous
  Country: BR (occurrence: BR)
  Receive Date: 20160408
  Receipt Date: 20160516
  Transmission Date: 20160815
  Serious: Yes (Life-Threatening, Hospitalization)
  Sender: FDA-Public Use
  Company Number: BR-JNJFOC-20160405560

PATIENT
  Age: 45 Year
  Sex: Male
  Weight: 58.7 kg

DRUGS (8)
  1. LEUCOVORINE [Concomitant]
     Active Substance: LEUCOVORIN
     Route: 065
  2. FLUORO URACIL [Concomitant]
     Active Substance: FLUOROURACIL
     Route: 065
  3. OMEPRAZOLE. [Concomitant]
     Active Substance: OMEPRAZOLE
     Route: 065
  4. OSCAL [Concomitant]
     Active Substance: CALCIUM CARBONATE
     Route: 065
  5. XARELTO [Suspect]
     Active Substance: RIVAROXABAN
     Indication: DEEP VEIN THROMBOSIS
     Route: 048
     Dates: end: 20160324
  6. BEVACIZUMAB [Concomitant]
     Active Substance: BEVACIZUMAB
     Route: 065
  7. FLUORO URACIL [Concomitant]
     Active Substance: FLUOROURACIL
     Route: 065
  8. XARELTO [Suspect]
     Active Substance: RIVAROXABAN
     Indication: EMBOLISM VENOUS
     Route: 048
     Dates: end: 20160324

REACTIONS (2)
  - Drug ineffective [Unknown]
  - Deep vein thrombosis [Recovered/Resolved]

NARRATIVE: CASE EVENT DATE: 20160324
